FAERS Safety Report 20781749 (Version 1)
Quarter: 2022Q2

REPORT INFORMATION
  Report Type: Spontaneous
  Country: SI (occurrence: SI)
  Receive Date: 20220504
  Receipt Date: 20220504
  Transmission Date: 20220720
  Serious: Yes (Other)
  Sender: FDA-Public Use
  Company Number: None

PATIENT
  Age: 70 Year
  Sex: Female

DRUGS (3)
  1. PACLITAXEL [Suspect]
     Active Substance: PACLITAXEL
     Indication: Breast cancer
     Dosage: STRENGTH:6 MG / ML, 132.4MG,EXP. DATE: 31-JAN-2023
     Route: 065
     Dates: start: 20220315, end: 20220315
  2. XGEVA [Concomitant]
     Active Substance: DENOSUMAB
  3. CAPECITABINE [Concomitant]
     Active Substance: CAPECITABINE
     Dosage: ACCORDING TO THE SCHEME

REACTIONS (3)
  - Hypertension [Recovered/Resolved]
  - Infusion related reaction [Recovered/Resolved]
  - Respiratory failure [Recovered/Resolved]

NARRATIVE: CASE EVENT DATE: 20220315
